FAERS Safety Report 4476111-1 (Version None)
Quarter: 2004Q3

REPORT INFORMATION
  Report Type: 
  Country: None (occurrence: None)
  Receive Date: 20040923
  Receipt Date: 20040715
  Transmission Date: 20050211
  Serious: No
  Sender: FDA-Public Use
  Company Number: USA040670768

PATIENT
  Age: 75 Year
  Sex: Female

DRUGS (7)
  1. FORTEO [Suspect]
     Indication: OSTEOPOROSIS
     Dosage: 20 UG DAY
     Dates: start: 20040318
  2. ALBUTEROL [Concomitant]
  3. MEDROL [Concomitant]
  4. SINGULAIR (MONTELUKAST) [Concomitant]
  5. ADVAIR DISKUS 100/50 [Concomitant]
  6. NEXIUM [Concomitant]
  7. CALCIUM [Concomitant]

REACTIONS (5)
  - ASTHENIA [None]
  - FATIGUE [None]
  - HYPOAESTHESIA [None]
  - PAIN [None]
  - TREMOR [None]
